FAERS Safety Report 4308571-0 (Version None)
Quarter: 2004Q1

REPORT INFORMATION
  Report Type: 
  Country: None (occurrence: None)
  Receive Date: 20040226
  Receipt Date: 20030506
  Transmission Date: 20041129
  Serious: Yes (Life-Threatening, Hospitalization)
  Sender: FDA-Public Use
  Company Number: 2003156584PR

PATIENT
  Age: 66 Year
  Sex: Male
  Weight: 115.6 kg

DRUGS (5)
  1. CELEBREX [Suspect]
     Indication: ARTHRALGIA
     Dosage: 200 MG, PRN, ORAL
     Route: 048
  2. ALTACE [Concomitant]
  3. TOPROL-XL [Concomitant]
  4. NORVASC [Concomitant]
  5. PROVENTIL [Concomitant]

REACTIONS (1)
  - ANAPHYLACTIC SHOCK [None]
